FAERS Safety Report 9720358 (Version 2)
Quarter: 2013Q4

REPORT INFORMATION
  Report Type: Spontaneous
  Country: US (occurrence: US)
  Receive Date: 20131129
  Receipt Date: 20131129
  Transmission Date: 20140711
  Serious: Yes (Other)
  Sender: FDA-Public Use
  Company Number: CHPA2013US017490

PATIENT
  Sex: Female

DRUGS (2)
  1. CONTROL PLP [Suspect]
     Indication: SMOKING CESSATION THERAPY
     Dosage: 2 DF, QD
     Route: 062
     Dates: start: 2013, end: 20131117
  2. CONTROL PLP [Suspect]
     Dosage: 14 MG, QD
     Route: 062

REACTIONS (6)
  - Cough [Recovered/Resolved]
  - Nasal congestion [Recovered/Resolved]
  - Influenza [Not Recovered/Not Resolved]
  - Overdose [Unknown]
  - Treatment noncompliance [Unknown]
  - Application site pain [Unknown]
